FAERS Safety Report 7407051-3 (Version None)
Quarter: 2011Q2

REPORT INFORMATION
  Report Type: 
  Country: None (occurrence: None)
  Receive Date: 20110411
  Receipt Date: 20110406
  Transmission Date: 20111010
  Serious: Yes (Life-Threatening, Hospitalization)
  Sender: FDA-Public Use
  Company Number: CA-ROCHE-723581

PATIENT
  Sex: Female
  Weight: 70.5 kg

DRUGS (21)
  1. TOCILIZUMAB [Suspect]
     Dosage: TEMPORARILY INTERRUPTED
     Route: 042
     Dates: end: 20100822
  2. TOCILIZUMAB [Suspect]
     Dosage: THE PATIENT WAS PREVIOUSLY ENROLLED IN WA17824 AND RECEIVED TOCILIZUMAB 8 MG/KG. FORM: INFUSION
     Route: 042
  3. LECITHIN [Concomitant]
     Dosage: TDD: 2 TBSP
     Dates: start: 20081022
  4. ACETAMINOPHEN [Concomitant]
     Route: 048
     Dates: start: 20061003
  5. VITALUX [Concomitant]
     Dates: start: 20081005
  6. MSM [Concomitant]
     Route: 048
     Dates: start: 20060917
  7. TOCILIZUMAB [Suspect]
     Dosage: LAST DOSE PRIOR TO SAE ON 20 JULY 2010.PERMANENTLY DISCONTINUED.
     Route: 042
     Dates: end: 20100914
  8. VITAMIN B COMPLEX CAP [Concomitant]
     Dates: start: 20060324
  9. METHOTREXATE [Concomitant]
     Dates: start: 20080520, end: 20100822
  10. GINKGO BILOBA [Concomitant]
     Dates: start: 20081022
  11. LEUCOVORIN [Concomitant]
     Dates: start: 20081113, end: 20090213
  12. NUJOL [Concomitant]
     Dosage: REPORTED AS: NUJOL MINERAL OIL DOSE: 1 APPLICATION
     Route: 061
     Dates: start: 20100312
  13. FOLIC ACID [Concomitant]
     Route: 048
     Dates: start: 20090214
  14. TOCILIZUMAB [Suspect]
     Indication: RHEUMATOID ARTHRITIS
     Route: 042
     Dates: start: 20061016, end: 20090330
  15. VITAMIN B COMPLEX CAP [Concomitant]
     Dates: start: 20060524
  16. ZINC GLUCONATE [Concomitant]
     Dates: start: 20081125
  17. BIOFLAVONOIDS [Concomitant]
     Dates: start: 20070328
  18. CALCIUM CITRATE [Concomitant]
     Dosage: REPORTED AS: CALCIUM PLUS MAGNESIUM CITRATE
     Dates: start: 19950101
  19. ASCORBIC ACID [Concomitant]
     Dates: start: 20100323
  20. ASPIRIN [Concomitant]
     Dates: start: 20081005, end: 20100821
  21. VITAMIN B-12 [Concomitant]
     Dates: start: 20081109

REACTIONS (3)
  - SMALL INTESTINAL OBSTRUCTION [None]
  - CHOLECYSTITIS [None]
  - DIFFUSE LARGE B-CELL LYMPHOMA [None]
